FAERS Safety Report 5908993-8 (Version None)
Quarter: 2008Q4

REPORT INFORMATION
  Report Type: 
  Country: None (occurrence: None)
  Receive Date: 20081001
  Receipt Date: 20080915
  Transmission Date: 20090506
  Serious: Yes (Death, Hospitalization)
  Sender: FDA-Public Use
  Company Number: 8037432

PATIENT
  Age: 77 Year
  Sex: Male

DRUGS (1)
  1. PREDNISOLONE [Suspect]
     Indication: PYODERMA GANGRENOSUM
     Dosage: 40 MG /D

REACTIONS (2)
  - AORTIC ANEURYSM RUPTURE [None]
  - BLOOD PRESSURE INCREASED [None]
